FAERS Safety Report 9547551 (Version 2)
Quarter: 2013Q3

REPORT INFORMATION
  Report Type: Spontaneous
  Country: US (occurrence: None)
  Receive Date: 20130606
  Receipt Date: 20130906
  Transmission Date: 20140515
  Serious: Yes (Hospitalization, Other)
  Sender: FDA-Public Use
  Company Number: 163-POMAL-13042440

PATIENT
  Age: 77 Year
  Sex: Male
  Weight: 73.48 kg

DRUGS (20)
  1. POMALYST (POMALIDOMIDE) (4 MILLIGRAM, CAPSULES) [Suspect]
     Indication: PLASMA CELL MYELOMA
     Route: 048
     Dates: start: 20130325
  2. DEXAMETHASONE [Concomitant]
  3. ZOMETA (ZOLEDRONIC ACID) [Concomitant]
  4. AMOXICILLIN [Concomitant]
  5. ASPIRIN (ACETYLSALICYLIC ACID) [Concomitant]
  6. LACTULOSE [Concomitant]
  7. LIDODERM (LIDOCAINE) [Concomitant]
  8. MEGACE (MEGESTROL ACETATE) [Concomitant]
  9. MULTIVITAMINS [Concomitant]
  10. ONDANSETRON HCL (ONDANSETRON HYDROCHLORIDE) [Concomitant]
  11. OXYCONTIN (OXYCODONE HYDROCHLORIDE) [Concomitant]
  12. OXYCODONE HCL (OXYCODONE HYDROCHLORIDE) [Concomitant]
  13. PROCHLORPERAZINE MALEATE [Concomitant]
  14. VITAMIN B-6 (PYRIDOXINE HYDROCHLORIDE) [Concomitant]
  15. VITAMIN D (ERGOCALCIFEROL) [Concomitant]
  16. CALCIUM [Concomitant]
  17. DIPHENHYDRAMINE HCL (DIPHENHYDRAMINE HYDROCHLORIDE) [Concomitant]
  18. HYDROCORTISONE SODIUM SUCCINATE [Concomitant]
  19. GABAPENTIN [Concomitant]
  20. SENNA PLUS (SENNOSIDE A-B) [Concomitant]

REACTIONS (1)
  - Blood immunoglobulin A increased [None]
